FAERS Safety Report 24674460 (Version 1)
Quarter: 2024Q4

REPORT INFORMATION
  Report Type: Spontaneous
  Country: TW (occurrence: TW)
  Receive Date: 20241128
  Receipt Date: 20241128
  Transmission Date: 20250115
  Serious: Yes (Other)
  Sender: MERCK
  Company Number: None

PATIENT
  Age: 79 Year
  Sex: Male
  Weight: 58 kg

DRUGS (6)
  1. DAPTOMYCIN [Suspect]
     Active Substance: DAPTOMYCIN
     Dosage: UNK, QD
     Route: 042
  2. DAPTOMYCIN [Suspect]
     Active Substance: DAPTOMYCIN
     Dosage: UNK
     Route: 065
  3. TAITA NO.3 [Concomitant]
     Dosage: 1 DOSAGE FORM
     Route: 042
     Dates: start: 20230626, end: 20230626
  4. LACTAM [Concomitant]
     Dosage: 1 TABLET, STAT
     Route: 048
     Dates: start: 20230627
  5. LYACETY [Concomitant]
     Dosage: 1 VIAL
     Route: 042
     Dates: start: 20230628
  6. DICLOXACILLIN SODIUM [Concomitant]
     Active Substance: DICLOXACILLIN SODIUM
     Dosage: 2 CAPSULES, QID
     Dates: start: 20230628

REACTIONS (1)
  - Interstitial lung disease [Unknown]
